FAERS Safety Report 9293559 (Version 2)
Quarter: 2013Q2

REPORT INFORMATION
  Report Type: Spontaneous
  Country: US (occurrence: US)
  Receive Date: 20130516
  Receipt Date: 20130628
  Transmission Date: 20140414
  Serious: Yes (Disabling)
  Sender: FDA-Public Use
  Company Number: US-PFIZER INC-2013151319

PATIENT
  Sex: Female

DRUGS (2)
  1. LYRICA [Suspect]
     Dosage: UNK
     Dates: start: 20080115, end: 20130515
  2. LYRICA [Suspect]
     Dosage: UNK
     Dates: end: 20130515

REACTIONS (3)
  - Blindness [Unknown]
  - Hypoacusis [Unknown]
  - Disability [Unknown]
